FAERS Safety Report 6572482-0 (Version None)
Quarter: 2010Q1

REPORT INFORMATION
  Report Type: 
  Country: None (occurrence: None)
  Receive Date: 20100205
  Receipt Date: 20100127
  Transmission Date: 20100710
  Serious: Yes (Life-Threatening)
  Sender: FDA-Public Use
  Company Number: JP-MERCK-1001USA03715

PATIENT
  Age: 60 Year
  Sex: Male

DRUGS (1)
  1. PEPCID [Suspect]
     Route: 042
     Dates: start: 20100113, end: 20100127

REACTIONS (2)
  - BRADYCARDIA [None]
  - CARDIAC ARREST [None]
